FAERS Safety Report 15436126 (Version 1)
Quarter: 2018Q3

REPORT INFORMATION
  Report Type: Spontaneous
  Country: US (occurrence: US)
  Receive Date: 20180924
  Receipt Date: 20180924
  Transmission Date: 20181010
  Serious: Yes (Disabling)
  Sender: FDA-Public Use
  Company Number: None

PATIENT
  Age: 52 Year
  Sex: Female
  Weight: 54 kg

DRUGS (10)
  1. MAG CITRATE [Concomitant]
  2. VITAMIN D [Concomitant]
     Active Substance: CHOLECALCIFEROL
  3. LOW DOSE NALTREXONE [Concomitant]
     Active Substance: NALTREXONE
  4. TURMERIC [Concomitant]
     Active Substance: HERBALS\TURMERIC
  5. IBUPROFEN. [Concomitant]
     Active Substance: IBUPROFEN
  6. GILENYA [Suspect]
     Active Substance: FINGOLIMOD HYDROCHLORIDE
     Indication: MULTIPLE SCLEROSIS
  7. LOW DOSE XANAX [Concomitant]
  8. AMPYRA [Concomitant]
     Active Substance: DALFAMPRIDINE
  9. OCULAR MVI [Concomitant]
  10. MVI MINERAL [Concomitant]

REACTIONS (4)
  - Depression [None]
  - Fatigue [None]
  - White blood cell count decreased [None]
  - Asthenia [None]

NARRATIVE: CASE EVENT DATE: 20180801
